FAERS Safety Report 13689340 (Version 1)
Quarter: 2017Q2

REPORT INFORMATION
  Report Type: Spontaneous
  Country: US (occurrence: US)
  Receive Date: 20170625
  Receipt Date: 20170625
  Transmission Date: 20170830
  Serious: Yes (Disabling, Other)
  Sender: FDA-Public Use
  Company Number: None

PATIENT
  Age: 62 Year
  Sex: Male
  Weight: 103.5 kg

DRUGS (2)
  1. ALPRAZOLAM. [Suspect]
     Active Substance: ALPRAZOLAM
     Indication: INSOMNIA
     Dosage: ?          OTHER STRENGTH:MG;QUANTITY:1 TABLET(S);?
     Route: 048
     Dates: start: 20120101, end: 20161201
  2. TOPROL XL [Concomitant]
     Active Substance: METOPROLOL SUCCINATE

REACTIONS (12)
  - Insomnia [None]
  - Withdrawal syndrome [None]
  - Drug monitoring procedure not performed [None]
  - Cognitive disorder [None]
  - Amnesia [None]
  - Hypoaesthesia [None]
  - Derealisation [None]
  - Tachycardia [None]
  - Abnormal behaviour [None]
  - Migraine [None]
  - Hypertension [None]
  - Gout [None]

NARRATIVE: CASE EVENT DATE: 20161201
